FAERS Safety Report 4266823-7 (Version None)
Quarter: 2004Q1

REPORT INFORMATION
  Report Type: 
  Country: None (occurrence: None)
  Receive Date: 20040108
  Receipt Date: 20030919
  Transmission Date: 20041129
  Serious: No
  Sender: FDA-Public Use
  Company Number: US-GLAXOSMITHKLINE-A0426616A

PATIENT
  Sex: Female

DRUGS (4)
  1. EPIVIR [Suspect]
     Indication: HIV INFECTION
     Dosage: 150TAB TWICE PER DAY
     Route: 048
  2. INVIRASE [Suspect]
  3. NORVIR [Suspect]
  4. VIREAD [Suspect]

REACTIONS (1)
  - WEIGHT INCREASED [None]
